FAERS Safety Report 9054216 (Version 5)
Quarter: 2017Q1

REPORT INFORMATION
  Report Type: Spontaneous
  Country: US (occurrence: US)
  Receive Date: 20130122
  Receipt Date: 20170105
  Transmission Date: 20170429
  Serious: No
  Sender: FDA-Public Use
  Company Number: US-ASTRAZENECA-2012SE27853

PATIENT
  Age: 69 Year
  Sex: Female

DRUGS (54)
  1. PULMICORT FLEXHALER [Suspect]
     Active Substance: BUDESONIDE
     Dosage: BUDESONIDE
     Route: 065
  2. A/B OTIC [Concomitant]
     Dosage: 1.4- 5.4% SOLN
  3. ANTIPYRINE BENZOCAINE [Concomitant]
     Indication: EAR PAIN
     Dosage: 54-14 MG/ML , PLACE 2 OR 3 DROPS EVERY 2 TO 3 HOURS AS NEEDED FOR EAR PAIN
     Route: 001
  4. ARTIFICIAL TEARS [Concomitant]
     Active Substance: GLYCERIN\HYPROMELLOSES\POLYETHYLENE GLYCOL 400
  5. FLUTICASONE PROPIONATE. [Concomitant]
     Active Substance: FLUTICASONE PROPIONATE
     Indication: ASTHMA
     Dosage: 50 MCG/ACT, 1 TO 2 SPRAYS IN EACH NOSTRIL ONCE DAILY
     Route: 045
  6. FUROSEMIDE. [Concomitant]
     Active Substance: FUROSEMIDE
     Indication: OEDEMA
     Dosage: 40 MG , 2-3 TABLETS BY MOUTH DAILY
     Route: 048
  7. VITAMIN C [Concomitant]
     Active Substance: ASCORBIC ACID
     Route: 048
  8. VITAMIN E [Concomitant]
     Active Substance: .ALPHA.-TOCOPHEROL
     Route: 048
  9. ALBUTEROL SULFATE. [Concomitant]
     Active Substance: ALBUTEROL SULFATE
     Dosage: 2.5MG/ 3 ML, 0.083%, INHALE THE CONTENTS OF ONE VIAL VIA SVN MACHINE EVERY 4 TO 6 HOURS AS NEEDED
     Route: 055
  10. CAPTOPRIL. [Concomitant]
     Active Substance: CAPTOPRIL
     Indication: DIABETIC NEPHROPATHY
     Route: 048
  11. GLIPIZIDE XL [Concomitant]
     Active Substance: GLIPIZIDE
     Indication: DIABETES MELLITUS
     Route: 048
  12. MAGNESIUM OXIDE. [Concomitant]
     Active Substance: MAGNESIUM OXIDE
     Route: 048
  13. MULTI B COMPLEX [Concomitant]
     Route: 048
  14. GUAIFENESIN. [Concomitant]
     Active Substance: GUAIFENESIN
     Route: 048
  15. ACYCLOVIR. [Concomitant]
     Active Substance: ACYCLOVIR
     Indication: HERPES ZOSTER OTICUS
     Route: 048
  16. CAPTOPRIL. [Concomitant]
     Active Substance: CAPTOPRIL
     Indication: DIABETIC NEPHROPATHY
     Route: 048
  17. SYMBICORT [Suspect]
     Active Substance: BUDESONIDE\FORMOTEROL FUMARATE DIHYDRATE
     Indication: ASTHMA
     Dosage: 2 PUFFS TWICE DAILY
     Route: 055
  18. PULMICORT FLEXHALER [Suspect]
     Active Substance: BUDESONIDE
     Route: 055
  19. AMANTADINE HCL [Concomitant]
     Active Substance: AMANTADINE HYDROCHLORIDE
     Indication: BRONCHITIS CHRONIC
     Route: 048
  20. FUROSEMIDE. [Concomitant]
     Active Substance: FUROSEMIDE
     Indication: OEDEMA
     Route: 048
  21. HYDROCONE- ACETAMINOPHEN [Concomitant]
     Indication: NECK PAIN
     Dosage: 1 TO 2 TABLETS BY MOUTH EVERY 6 HOURS AS NEEDED FOR PAIN. NO MORE THAN 8 TABLETS PER DAY
     Route: 048
  22. LIDOCAINE VISCOUS [Concomitant]
     Active Substance: LIDOCAINE HYDROCHLORIDE
     Dosage: 2% MOUTH/ THROAT SOLUTION
  23. NYSTATIN. [Concomitant]
     Active Substance: NYSTATIN
     Dosage: 1000 UNIT/ML , MOUTH /THROAT SUSPENSION
  24. SENIOR MULTIVITAMINS [Concomitant]
     Route: 048
  25. ERGOCALCIFEROL. [Concomitant]
     Active Substance: ERGOCALCIFEROL
     Route: 048
  26. PRILOSEC [Suspect]
     Active Substance: OMEPRAZOLE MAGNESIUM
     Route: 048
  27. AMANTADINE HCL [Concomitant]
     Active Substance: AMANTADINE HYDROCHLORIDE
     Indication: BRONCHITIS CHRONIC
     Dosage: 100.0MG AS REQUIRED
     Route: 048
  28. IPRATROPIUM BROMIDE. [Concomitant]
     Active Substance: IPRATROPIUM BROMIDE
     Dosage: 0.02% ONE UNIT DOSE IN NEBULIZER EVERY 4 HOURS. MIX WITH 1 UNIT DOSE OF ALBUTEROL FOR EACH TREATMENT
     Route: 055
  29. PREDNISONE. [Concomitant]
     Active Substance: PREDNISONE
     Route: 048
  30. VENTOLIN HFA [Concomitant]
     Active Substance: ALBUTEROL SULFATE
  31. ALLOPURINOL. [Concomitant]
     Active Substance: ALLOPURINOL
     Indication: GOUT
     Route: 048
  32. CALCIUM + D [Concomitant]
     Active Substance: CALCIUM\VITAMIN D
     Route: 048
  33. CINNAMON. [Concomitant]
     Active Substance: CINNAMON
     Route: 048
  34. OMEGA 3 [Concomitant]
     Active Substance: OMEGA-3 FATTY ACIDS
     Route: 048
  35. POTASSIUM CHLORIDE CRYS [Concomitant]
     Indication: HYPOKALAEMIA
     Route: 048
  36. TRAMADOL. [Concomitant]
     Active Substance: TRAMADOL
     Route: 048
  37. RANITIDINE HCL [Concomitant]
     Active Substance: RANITIDINE HYDROCHLORIDE
     Route: 048
  38. SULFAMETHOXAZOLE-TRIMETHOPRIM [Concomitant]
     Active Substance: SULFAMETHOXAZOLE\TRIMETHOPRIM
     Dosage: 800-160 MG, TWICE DAILY
     Route: 048
  39. ONDANSETRON [Concomitant]
     Active Substance: ONDANSETRON
     Indication: NAUSEA
     Dosage: 4 MG, 1-2 TABLET BY MOUTH EVERY 6 HOURS AS NEEDED
     Route: 048
  40. DIPHENHYDRAMINE HCL [Concomitant]
     Active Substance: DIPHENHYDRAMINE HYDROCHLORIDE
     Route: 048
  41. PULMICORT FLEXHALER [Suspect]
     Active Substance: BUDESONIDE
     Dosage: 0.5 MG/ 2 ML, 1 UNIT DOSE VIA NEBULIZER TWO TIMES A DAY
     Route: 055
  42. BENADRYL ALLERGY [Concomitant]
     Active Substance: DIPHENHYDRAMINE HYDROCHLORIDE
     Route: 048
  43. CALCIUM + D [Concomitant]
     Active Substance: CALCIUM\VITAMIN D
     Dosage: 600- 200 MG TWICE DAILY
     Route: 048
  44. METOLAZONE. [Concomitant]
     Active Substance: METOLAZONE
     Indication: OEDEMA
     Route: 048
  45. PANTOPRAZOLE SODIUM. [Concomitant]
     Active Substance: PANTOPRAZOLE SODIUM
     Indication: GASTROOESOPHAGEAL REFLUX DISEASE
     Route: 048
  46. VITAMIN D [Concomitant]
     Active Substance: CHOLECALCIFEROL
     Dosage: 1 CAPSULE WEEKLYX 12 WEEKS
     Route: 048
  47. LACTULOSE. [Concomitant]
     Active Substance: LACTULOSE
     Dosage: 10 GM/15ML ORAL SOLUTION, TAKE 3 TBSP DAILY
     Route: 048
  48. INFLUENZA VIRUS VACCINE [Suspect]
     Active Substance: INFLUENZA VIRUS VACCINE
     Route: 065
  49. HYDROCONE- ACETAMINOPHEN [Concomitant]
     Indication: PAIN
     Dosage: 1 TO 2 TABLETS BY MOUTH EVERY 6 HOURS AS NEEDED FOR PAIN. NO MORE THAN 8 TABLETS PER DAY
     Route: 048
  50. LYRICA [Concomitant]
     Active Substance: PREGABALIN
     Indication: DIABETIC NEUROPATHY
     Route: 048
  51. MAGNESIUM OXIDE. [Concomitant]
     Active Substance: MAGNESIUM OXIDE
     Route: 048
  52. POTASSIUM CHLORIDE CRYS [Concomitant]
     Indication: HYPOKALAEMIA
     Route: 048
  53. TRIMETHOBENZAMIDE [Concomitant]
     Active Substance: TRIMETHOBENZAMIDE
  54. PROAIR HFA [Concomitant]
     Active Substance: ALBUTEROL SULFATE
     Dosage: 108(90 BASE) 2 PUFFS EVERY 6 HOURS AS NEEDED
     Route: 055

REACTIONS (9)
  - Drug hypersensitivity [Unknown]
  - Asthma [Unknown]
  - Neuropathy peripheral [Recovering/Resolving]
  - Malaise [Unknown]
  - Gait disturbance [Recovering/Resolving]
  - Abdominal pain [Unknown]
  - Hypersensitivity [Unknown]
  - Muscle spasms [Unknown]
  - Migraine [Unknown]
